FAERS Safety Report 9178706 (Version 2)
Quarter: 2013Q3

REPORT INFORMATION
  Report Type: Spontaneous
  Country: US (occurrence: US)
  Receive Date: 20121029
  Receipt Date: 20130820
  Transmission Date: 20140515
  Serious: Yes (Hospitalization, Disabling, Other)
  Sender: FDA-Public Use
  Company Number: US-009507513-1210USA012420

PATIENT
  Sex: Female
  Weight: 84.35 kg

DRUGS (4)
  1. FOSAMAX [Suspect]
     Indication: BONE DENSITY DECREASED
     Dosage: 70 MG, UNK
     Route: 048
  2. FOSAMAX [Suspect]
     Indication: OSTEOPOROSIS
  3. ALENDRONATE SODIUM [Suspect]
     Dosage: 70 MG, UNK
  4. CALCIUM (UNSPECIFIED) (+) VITAMIN D (UNSPECIFIED) [Concomitant]
     Indication: OSTEOPOROSIS
     Dosage: 500 MG, BID
     Route: 048

REACTIONS (22)
  - Femur fracture [Not Recovered/Not Resolved]
  - Intramedullary rod insertion [Not Recovered/Not Resolved]
  - Ankle fracture [Recovered/Resolved]
  - Road traffic accident [Unknown]
  - Pulmonary embolism [Unknown]
  - Foot fracture [Unknown]
  - Depression [Unknown]
  - Anxiety [Unknown]
  - Device failure [Unknown]
  - Bursitis [Recovered/Resolved]
  - Vitamin D deficiency [Unknown]
  - Calcium deficiency [Unknown]
  - Ankle operation [Recovered/Resolved]
  - Hypercholesterolaemia [Unknown]
  - Hypertension [Unknown]
  - Osteopenia [Unknown]
  - Occult blood positive [Unknown]
  - Lethargy [Unknown]
  - Deep vein thrombosis [Unknown]
  - Medical device removal [Unknown]
  - Drug ineffective [Unknown]
  - Back pain [Unknown]
